FAERS Safety Report 8404802 (Version 2)
Quarter: 2013Q4

REPORT INFORMATION
  Report Type: Spontaneous
  Country: US (occurrence: US)
  Receive Date: 20120214
  Receipt Date: 20131231
  Transmission Date: 20140711
  Serious: Yes (Other)
  Sender: FDA-Public Use
  Company Number: US-BAYER-2012-013712

PATIENT
  Age: 21 Year
  Sex: Female

DRUGS (10)
  1. YAZ [Suspect]
     Dosage: UNK
     Route: 048
     Dates: start: 200806, end: 2009
  2. PANTOPRAZOLE [Concomitant]
     Dosage: 40 MG, UNK
     Route: 048
     Dates: start: 20090816
  3. PROTONIX [Concomitant]
     Dosage: 40 MG, UNK
     Route: 048
     Dates: start: 20090825
  4. HYOSCYAMINE [Concomitant]
     Dosage: 0.125 MG, UNK
     Route: 048
     Dates: start: 20090922
  5. CIPROFLOXACIN [Concomitant]
     Dosage: 500 MG, UNK
     Route: 048
     Dates: start: 20090923
  6. LEVSIN [Concomitant]
     Dosage: 0.125 MG, UNK
     Route: 060
     Dates: start: 200909
  7. ZELNORM [Concomitant]
     Dosage: 6 MG, UNK
     Route: 048
     Dates: start: 200910
  8. DICETEL [Concomitant]
     Dosage: 50 MG, UNK
     Route: 048
     Dates: start: 200910
  9. LOTRONEX [Concomitant]
     Dosage: 0.5 MG, UNK
     Route: 048
     Dates: start: 20091029
  10. TRAMADOL [Concomitant]
     Dosage: 50 MG, UNK
     Route: 048
     Dates: start: 20091103

REACTIONS (9)
  - Gallbladder disorder [None]
  - Cholecystitis chronic [None]
  - Pain [None]
  - Anxiety [None]
  - Psychological trauma [None]
  - Anhedonia [None]
  - Injury [None]
  - Post cholecystectomy syndrome [None]
  - Gastrointestinal disorder [None]
